FAERS Safety Report 20406763 (Version 1)
Quarter: 2022Q1

REPORT INFORMATION
  Report Type: Other
  Country: TR (occurrence: None)
  Receive Date: 20220131
  Receipt Date: 20220131
  Transmission Date: 20220424
  Serious: Yes (Hospitalization)
  Sender: FDA-Public Use
  Company Number: TR-ROCHE-3010456

PATIENT
  Age: 34 Year
  Sex: Female

DRUGS (3)
  1. RITUXIMAB [Suspect]
     Active Substance: RITUXIMAB
     Indication: Follicular lymphoma
     Route: 042
  2. FAVIPIRAVIR [Concomitant]
     Active Substance: FAVIPIRAVIR
  3. OXYGEN [Concomitant]
     Active Substance: OXYGEN

REACTIONS (2)
  - COVID-19 pneumonia [Not Recovered/Not Resolved]
  - Viral test positive [Not Recovered/Not Resolved]
